FAERS Safety Report 17764618 (Version 1)
Quarter: 2020Q2

REPORT INFORMATION
  Report Type: Spontaneous
  Country: EE (occurrence: EE)
  Receive Date: 20200511
  Receipt Date: 20200511
  Transmission Date: 20200714
  Serious: Yes (Other)
  Sender: FDA-Public Use
  Company Number: EE-ACCORD-181186

PATIENT
  Age: 67 Year
  Sex: Male

DRUGS (6)
  1. PEMBROLIZUMAB. [Concomitant]
     Active Substance: PEMBROLIZUMAB
     Route: 065
  2. TRIFLURIDINE/TIPIRACIL [Concomitant]
     Active Substance: TIPIRACIL HYDROCHLORIDE\TRIFLURIDINE
     Route: 065
  3. BEVACIZUMAB. [Suspect]
     Active Substance: BEVACIZUMAB
     Indication: COLON CANCER STAGE III
     Route: 065
     Dates: start: 201808
  4. REGORAFENIB. [Concomitant]
     Active Substance: REGORAFENIB
     Route: 065
  5. IRINOTECAN [Suspect]
     Active Substance: IRINOTECAN
     Indication: COLON CANCER STAGE III
     Route: 065
     Dates: start: 201808
  6. CAPECITABINE. [Suspect]
     Active Substance: CAPECITABINE
     Indication: COLON CANCER STAGE III
     Route: 048
     Dates: end: 201808

REACTIONS (7)
  - Neutropenia [Unknown]
  - Lymphadenopathy [Unknown]
  - Colon cancer metastatic [Unknown]
  - Refusal of treatment by patient [Not Recovered/Not Resolved]
  - Malignant neoplasm progression [Unknown]
  - Mesenteric vein thrombosis [Unknown]
  - Leukopenia [Unknown]

NARRATIVE: CASE EVENT DATE: 201810
